FAERS Safety Report 15120941 (Version 4)
Quarter: 2019Q1

REPORT INFORMATION
  Report Type: Spontaneous
  Country: US (occurrence: US)
  Receive Date: 20180709
  Receipt Date: 20190311
  Transmission Date: 20190417
  Serious: Yes (Other)
  Sender: FDA-Public Use
  Company Number: US-SA-2018SA132829

PATIENT
  Age: 63 Year
  Sex: Female

DRUGS (2)
  1. AUBAGIO [Suspect]
     Active Substance: TERIFLUNOMIDE
     Indication: MULTIPLE SCLEROSIS
     Dosage: 14 MG,QD
     Route: 048
     Dates: start: 20180123
  2. IBUPROFEN. [Suspect]
     Active Substance: IBUPROFEN

REACTIONS (13)
  - Fatigue [Not Recovered/Not Resolved]
  - Depression [Unknown]
  - Back disorder [Unknown]
  - Discomfort [Not Recovered/Not Resolved]
  - Anaemia [Unknown]
  - Weight increased [Unknown]
  - Haematochezia [Unknown]
  - Neuralgia [Unknown]
  - Gait inability [Unknown]
  - Blood iron decreased [Not Recovered/Not Resolved]
  - Thirst [Not Recovered/Not Resolved]
  - Back pain [Unknown]
  - Haemoglobin abnormal [Unknown]
